FAERS Safety Report 23953718 (Version 2)
Quarter: 2024Q2

REPORT INFORMATION
  Report Type: Spontaneous
  Country: US (occurrence: US)
  Receive Date: 20240608
  Receipt Date: 20240628
  Transmission Date: 20240716
  Serious: Yes (Hospitalization, Other)
  Sender: FDA-Public Use
  Company Number: US-SA-SAC20240607000133

PATIENT
  Age: 34 Year
  Sex: Female

DRUGS (1)
  1. DUPIXENT [Suspect]
     Active Substance: DUPILUMAB
     Indication: Asthma
     Dosage: 300 MG, QOW
     Route: 058
     Dates: start: 202210

REACTIONS (6)
  - Hypoxia [Unknown]
  - Pyrexia [Unknown]
  - Cough [Unknown]
  - Dyspnoea [Unknown]
  - Wheezing [Unknown]
  - Back pain [Unknown]

NARRATIVE: CASE EVENT DATE: 20240519
